FAERS Safety Report 6501484-5 (Version None)
Quarter: 2009Q4

REPORT INFORMATION
  Report Type: 
  Country: None (occurrence: None)
  Receive Date: 20091216
  Receipt Date: 20091208
  Transmission Date: 20100525
  Serious: Yes (Congenital Anomaly)
  Sender: FDA-Public Use
  Company Number: A0680682A

PATIENT
  Sex: Female

DRUGS (4)
  1. PAXIL [Suspect]
     Indication: DEPRESSION
     Dosage: 40MG PER DAY
     Dates: start: 19990101
  2. PAROXETINE HYDROCHLORIDE [Suspect]
     Indication: DEPRESSION
  3. ADVAIR DISKUS 100/50 [Concomitant]
  4. VITAMIN TAB [Concomitant]

REACTIONS (4)
  - CONGENITAL ANOMALY [None]
  - DRUG EXPOSURE DURING PREGNANCY [None]
  - PATENT DUCTUS ARTERIOSUS [None]
  - PULMONARY HYPERTENSION [None]
